FAERS Safety Report 21309098 (Version 3)
Quarter: 2023Q1

REPORT INFORMATION
  Report Type: Report from Study
  Country: US (occurrence: US)
  Receive Date: 20220908
  Receipt Date: 20230129
  Transmission Date: 20230417
  Serious: Yes (Hospitalization, Other)
  Sender: FDA-Public Use
  Company Number: US-BoehringerIngelheim-2021-BI-085122

PATIENT
  Age: 49 Year
  Sex: Male

DRUGS (5)
  1. OFEV [Suspect]
     Active Substance: NINTEDANIB
     Indication: Idiopathic pulmonary fibrosis
     Route: 048
     Dates: start: 20200806
  2. TYVASO TD300 START KIT [Concomitant]
     Indication: Pulmonary arterial hypertension
     Dosage: 0.6MG/ML INHALE THREE BREATHS
     Route: 055
     Dates: start: 20220830
  3. TYVASO TD300 START KIT [Concomitant]
     Indication: Pulmonary hypertension
     Dosage: 0.6MG/ML 9 BREATHS INHALED
     Route: 055
     Dates: start: 202208
  4. TYVASO TD300 START KIT [Concomitant]
     Indication: Lung disorder
  5. TYVASO TD300 START KIT [Concomitant]
     Indication: Hypoxia

REACTIONS (21)
  - Nausea [Not Recovered/Not Resolved]
  - Pain in jaw [Not Recovered/Not Resolved]
  - Fluid retention [Recovered/Resolved]
  - Dyspnoea [Not Recovered/Not Resolved]
  - Fluid retention [Recovered/Resolved]
  - Thrombotic thrombocytopenic purpura [Unknown]
  - Lower respiratory tract congestion [Not Recovered/Not Resolved]
  - Productive cough [Unknown]
  - Oedema peripheral [Unknown]
  - Cough [Not Recovered/Not Resolved]
  - Secretion discharge [Not Recovered/Not Resolved]
  - Dyspnoea exertional [Unknown]
  - Chest pain [Unknown]
  - Fatigue [Unknown]
  - Syncope [Unknown]
  - Dizziness [Unknown]
  - Blood pressure increased [Not Recovered/Not Resolved]
  - Dizziness [Not Recovered/Not Resolved]
  - Headache [Not Recovered/Not Resolved]
  - Loss of consciousness [Not Recovered/Not Resolved]
  - Nasopharyngitis [Not Recovered/Not Resolved]
